FAERS Safety Report 8494914-3 (Version None)
Quarter: 2012Q3

REPORT INFORMATION
  Report Type: 
  Country: None (occurrence: None)
  Receive Date: 20120709
  Receipt Date: 20120704
  Transmission Date: 20120928
  Serious: Yes (Hospitalization)
  Sender: FDA-Public Use
  Company Number: FR-PFIZER INC-2012159942

PATIENT
  Age: 74 Year
  Sex: Female

DRUGS (13)
  1. NEXIUM [Suspect]
     Dosage: UNK
     Dates: start: 20120402, end: 20120425
  2. ECONAZOLE [Suspect]
     Dosage: UNK
     Dates: end: 20120425
  3. LASIX [Concomitant]
     Dosage: UNK
     Dates: start: 20120408
  4. TAZOBACTAM [Suspect]
     Indication: MEDIASTINITIS
     Dosage: UNK
     Dates: start: 20120329, end: 20120402
  5. MINISINTROM [Suspect]
     Indication: ARRHYTHMIA
     Dosage: UNK
     Dates: start: 20120403, end: 20120425
  6. AMIKACIN [Suspect]
     Dosage: 1 DF, SINGLE
     Dates: start: 20120422, end: 20120422
  7. AMOXICILLIN TRIHYDRATE [Suspect]
     Indication: MEDIASTINITIS
     Dosage: UNK
     Dates: start: 20120402, end: 20120422
  8. AMIKACIN [Suspect]
     Indication: MEDIASTINITIS
     Dosage: 1 DF, SINGLE
     Dates: start: 20120329, end: 20120329
  9. CORDARONE [Concomitant]
     Indication: ARRHYTHMIA
     Dosage: 1 DF, SINGLE
     Dates: start: 20120329, end: 20120329
  10. CORDARONE [Concomitant]
     Dosage: UNK
  11. CORDARONE [Concomitant]
     Dosage: 1 DF, SINGLE
     Dates: start: 20120408, end: 20120408
  12. CIPROFLOXACIN [Suspect]
     Indication: MEDIASTINITIS
     Dosage: 500 MG, 2X/DAY
     Dates: start: 20120402, end: 20120425
  13. AUGMENTIN '125' [Suspect]
     Indication: LUNG DISORDER
     Dosage: UNK
     Dates: start: 20120326, end: 20120401

REACTIONS (2)
  - RASH [None]
  - ACUTE GENERALISED EXANTHEMATOUS PUSTULOSIS [None]
